FAERS Safety Report 7885751-9 (Version None)
Quarter: 2011Q4

REPORT INFORMATION
  Report Type: 
  Country: None (occurrence: None)
  Receive Date: 20111102
  Receipt Date: 20110627
  Transmission Date: 20120403
  Serious: No
  Sender: FDA-Public Use
  Company Number: US-AMGEN-USASP2011032837

PATIENT
  Age: 84 Year
  Sex: Female
  Weight: 48.526 kg

DRUGS (7)
  1. HUMIRA [Suspect]
     Indication: RHEUMATOID ARTHRITIS
     Dosage: 40 MG, Q2WK
     Dates: start: 20080101
  2. HYDROXYCHLOROQUINE SULFATE [Concomitant]
     Indication: RHEUMATOID ARTHRITIS
     Dosage: 200 MG, QD
  3. OXYBUTYNIN [Concomitant]
     Indication: POLLAKIURIA
     Dosage: 15 MG, QD
  4. ASPIRIN [Concomitant]
     Indication: ATRIAL FIBRILLATION
     Dosage: 325 MG, QD
  5. ENBREL [Suspect]
     Indication: RHEUMATOID ARTHRITIS
     Dosage: UNK
     Dates: end: 20080101
  6. CALCIUM CITRATE [Concomitant]
     Dosage: 250 MG, BID
  7. PROPAFENONE HCL [Concomitant]
     Indication: ATRIAL FIBRILLATION
     Dosage: 225 MG, UNK

REACTIONS (1)
  - CONTUSION [None]
